FAERS Safety Report 24366037 (Version 2)
Quarter: 2024Q3

REPORT INFORMATION
  Report Type: Spontaneous
  Country: PR (occurrence: PR)
  Receive Date: 20240926
  Receipt Date: 20240926
  Transmission Date: 20241016
  Serious: No
  Sender: PFIZER
  Company Number: PR-PFIZER INC-202400263328

PATIENT
  Age: 59 Year
  Sex: Female

DRUGS (2)
  1. CIBINQO [Interacting]
     Active Substance: ABROCITINIB
     Dosage: 100 MG, DAILY
     Route: 048
  2. INDAPAMIDE [Interacting]
     Active Substance: INDAPAMIDE

REACTIONS (2)
  - Drug interaction [Unknown]
  - Limb injury [Unknown]
